FAERS Safety Report 19331344 (Version 2)
Quarter: 2021Q2

REPORT INFORMATION
  Report Type: Spontaneous
  Country: CZ (occurrence: CZ)
  Receive Date: 20210528
  Receipt Date: 20210622
  Transmission Date: 20210717
  Serious: No
  Sender: FDA-Public Use
  Company Number: CZ-009507513-2105CZE004672

PATIENT
  Age: 75 Year
  Sex: Male

DRUGS (6)
  1. ATORIS [Concomitant]
     Active Substance: ATORVASTATIN CALCIUM
     Dosage: STRENGTH 40, 1?0?0
  2. SITAGLIPTIN PHOSPHATE [Suspect]
     Active Substance: SITAGLIPTIN PHOSPHATE
     Route: 048
  3. BETALOC ZOK [Concomitant]
     Active Substance: METOPROLOL SUCCINATE
     Dosage: STRENGTH 50, 1?0?0
  4. GODASAL [ACETYLSALICYLIC ACID] [Concomitant]
     Dosage: STRENGTH 100, 1?0?0 ? PERMANENTLY
  5. AMPRILAN [Concomitant]
     Active Substance: RAMIPRIL
     Dosage: STRENGTH 5, 0?1/2?0
  6. GLUCOPHAGE XR [Concomitant]
     Active Substance: METFORMIN HYDROCHLORIDE
     Dosage: 0?0?1

REACTIONS (1)
  - Rash [Unknown]
